FAERS Safety Report 5318880-4 (Version None)
Quarter: 2007Q1

REPORT INFORMATION
  Report Type: 
  Country: None (occurrence: None)
  Receive Date: 20070201
  Receipt Date: 20061226
  Transmission Date: 20070707
  Serious: No
  Sender: FDA-Public Use
  Company Number: VNL_0355_2006

PATIENT

DRUGS (1)
  1. APOKYN [Suspect]
     Indication: DRUG USE FOR UNKNOWN INDICATION
     Dosage: DF; SC
     Route: 058
     Dates: start: 20061205, end: 20061219

REACTIONS (1)
  - LIMB DISCOMFORT [None]
